FAERS Safety Report 8713633 (Version 2)
Quarter: 2012Q4

REPORT INFORMATION
  Report Type: 
  Country: JP (occurrence: JP)
  Receive Date: 20120808
  Receipt Date: 20120917
  Transmission Date: 20130627
  Serious: Yes (Hospitalization)
  Sender: FDA-Public Use
  Company Number: JP-BAYER-2012-077522

PATIENT
  Age: 25 Year
  Sex: Female
  Weight: 53 kg

DRUGS (2)
  1. YAZ [Suspect]
     Dosage: Daily dose 1 DF
     Route: 048
     Dates: start: 20120610, end: 20120625
  2. ZOLOFT [Concomitant]
     Dosage: UNK
     Route: 048

REACTIONS (2)
  - Visual field defect [Recovered/Resolved]
  - Vomiting [Recovered/Resolved]
